FAERS Safety Report 7118263-0 (Version None)
Quarter: 2010Q4

REPORT INFORMATION
  Report Type: 
  Country: None (occurrence: None)
  Receive Date: 20101118
  Receipt Date: 20101118
  Transmission Date: 20110411
  Serious: Yes (Other)
  Sender: FDA-Public Use
  Company Number: None

PATIENT
  Sex: Female

DRUGS (1)
  1. COPAXONE [Suspect]
     Dosage: COPAXONE 20 MG QD SQ
     Route: 058
     Dates: start: 20090202

REACTIONS (2)
  - INJECTION SITE REACTION [None]
  - SKIN NODULE [None]
